FAERS Safety Report 8019553 (Version 5)
Quarter: 2013Q2

REPORT INFORMATION
  Report Type: Spontaneous
  Country: US (occurrence: US)
  Receive Date: 20110704
  Receipt Date: 20130412
  Transmission Date: 20140414
  Serious: Yes (Hospitalization, Other)
  Sender: FDA-Public Use
  Company Number: US-ELI_LILLY_AND_COMPANY-US201105005212

PATIENT
  Age: 84 Year
  Sex: Female

DRUGS (6)
  1. FORTEO [Suspect]
     Indication: OSTEOPOROSIS
     Dosage: 20 UG, QD
     Route: 065
     Dates: start: 20110502
  2. FORTEO [Suspect]
     Dosage: 20 UG, QD
  3. FORTEO [Suspect]
     Dosage: 20 UG, QD
  4. VITAMINS [Concomitant]
  5. NEXIUM [Concomitant]
  6. PLAVIX                             /01220701/ [Concomitant]

REACTIONS (13)
  - Myocardial infarction [Unknown]
  - Hip fracture [Recovered/Resolved]
  - Fall [Unknown]
  - Kidney infection [Unknown]
  - Malaise [Not Recovered/Not Resolved]
  - Musculoskeletal disorder [Unknown]
  - Arthropathy [Unknown]
  - Depressed level of consciousness [Unknown]
  - Oesophageal stenosis [Unknown]
  - Dysphagia [Unknown]
  - Weight decreased [Unknown]
  - Feeding disorder [Unknown]
  - Depression [Not Recovered/Not Resolved]
